FAERS Safety Report 12369299 (Version 1)
Quarter: 2016Q2

REPORT INFORMATION
  Report Type: Spontaneous
  Country: US (occurrence: US)
  Receive Date: 20160513
  Receipt Date: 20160513
  Transmission Date: 20160815
  Serious: No
  Sender: FDA-Public Use
  Company Number: PHEH2016US011643

PATIENT
  Sex: Male

DRUGS (4)
  1. EXELON PATCH [Suspect]
     Active Substance: RIVASTIGMINE
     Dosage: 4.6 MG/24H 09 MG DAILY RIVASTIGMINE BASE PATCH 5 (CM2)
     Route: 062
  2. EXELON PATCH [Suspect]
     Active Substance: RIVASTIGMINE
     Dosage: ONE 4.6 MG PATCH AND THEN CUT ANOTHER 4.6 PATCH IN HALF
     Route: 062
  3. EXELON PATCH [Suspect]
     Active Substance: RIVASTIGMINE
     Dosage: 9.5MG/24H 18 MG DAILY RIVASTIGMINE BASE PATCH 10 (CM2)
     Route: 062
  4. EXELON PATCH [Suspect]
     Active Substance: RIVASTIGMINE
     Indication: PRODUCT USED FOR UNKNOWN INDICATION
     Dosage: 4.6 MG/24H 09 MG DAILY RIVASTIGMINE BASE PATCH 5 (CM2)
     Route: 062

REACTIONS (3)
  - Drug hypersensitivity [Unknown]
  - Drug prescribing error [Unknown]
  - Wrong technique in product usage process [Unknown]
